FAERS Safety Report 4267095-X (Version None)
Quarter: 2004Q1

REPORT INFORMATION
  Report Type: 
  Country: None (occurrence: None)
  Receive Date: 20040107
  Receipt Date: 20031211
  Transmission Date: 20041129
  Serious: Yes (Hospitalization, Disabling)
  Sender: FDA-Public Use
  Company Number: N135376

PATIENT
  Age: 58 Year
  Sex: Male

DRUGS (9)
  1. PLAVIX [Suspect]
     Indication: MYOCARDIAL INFARCTION
     Dosage: 75 MG
     Route: 048
     Dates: start: 20010726, end: 20010817
  2. PLAVIX [Suspect]
     Indication: STENT PLACEMENT
     Dosage: 75 MG
     Route: 048
     Dates: start: 20010726, end: 20010817
  3. DRUG USED IN DIABETES - (ROSIGLITAZONE) [Suspect]
     Dosage: 4 MG OD
     Route: 048
     Dates: end: 20010817
  4. STATIN [Suspect]
     Dates: start: 20010803, end: 20010805
  5. ACETYLSALICYLIC ACID SRT [Concomitant]
  6. ATENOLOL [Concomitant]
  7. ZESTRIL [Concomitant]
  8. NORVASC [Concomitant]
  9. GLUCOTROL [Concomitant]

REACTIONS (3)
  - ANAPHYLACTIC REACTION [None]
  - DYSPHAGIA [None]
  - URTICARIA [None]
